FAERS Safety Report 19037565 (Version 2)
Quarter: 2021Q4

REPORT INFORMATION
  Report Type: Spontaneous
  Country: CA (occurrence: CA)
  Receive Date: 20210322
  Receipt Date: 20211021
  Transmission Date: 20220303
  Serious: Yes (Hospitalization)
  Sender: FDA-Public Use
  Company Number: 2021A147000

PATIENT
  Age: 61 Year
  Sex: Male

DRUGS (12)
  1. BENRALIZUMAB [Suspect]
     Active Substance: BENRALIZUMAB
     Indication: Asthma
     Dosage: UNKNOWN UNKNOWN
     Route: 058
     Dates: start: 201808
  2. BENRALIZUMAB [Suspect]
     Active Substance: BENRALIZUMAB
     Indication: Asthma
     Dosage: UNKNOWN UNKNOWN
     Route: 058
     Dates: start: 201808
  3. FLUTICASONE [Suspect]
     Active Substance: FLUTICASONE
     Indication: Asthma
     Route: 055
  4. FLUTICASONE [Suspect]
     Active Substance: FLUTICASONE
     Indication: Asthma
     Route: 055
  5. MEPOLIZUMAB [Suspect]
     Active Substance: MEPOLIZUMAB
     Indication: Asthma
     Route: 065
     Dates: start: 2017, end: 201808
  6. MEPOLIZUMAB [Suspect]
     Active Substance: MEPOLIZUMAB
     Indication: Asthma
     Route: 065
     Dates: start: 2017, end: 201808
  7. PREDNISONE [Suspect]
     Active Substance: PREDNISONE
     Indication: Asthma
     Route: 048
  8. PREDNISONE [Suspect]
     Active Substance: PREDNISONE
     Indication: Asthma
     Route: 048
  9. PREDNISONE [Suspect]
     Active Substance: PREDNISONE
     Indication: Asthma
     Route: 048
  10. PREDNISONE [Suspect]
     Active Substance: PREDNISONE
     Indication: Asthma
     Route: 048
  11. SALMETEROL [Concomitant]
     Active Substance: SALMETEROL
     Indication: Asthma
     Route: 065
  12. SALMETEROL [Concomitant]
     Active Substance: SALMETEROL
     Indication: Asthma
     Route: 065

REACTIONS (5)
  - Asthma [Recovering/Resolving]
  - Pneumonia pneumococcal [Recovering/Resolving]
  - Pseudomonas infection [Recovering/Resolving]
  - Septic shock [Recovering/Resolving]
  - Weight decreased [Recovering/Resolving]
